FAERS Safety Report 4509194-0 (Version None)
Quarter: 2004Q4

REPORT INFORMATION
  Report Type: 
  Country: None (occurrence: None)
  Receive Date: 20041025
  Receipt Date: 20040323
  Transmission Date: 20050328
  Serious: Yes (Hospitalization)
  Sender: FDA-Public Use
  Company Number: NSADSS2002013481

PATIENT
  Age: 47 Year
  Sex: Male
  Weight: 63.5036 kg

DRUGS (2)
  1. REMICADE [Suspect]
     Dosage: 1 IN 1 AS NECESSARY, INTRAVENOUS DRIP
     Route: 041
     Dates: start: 20030301
  2. PREDNISONE [Concomitant]

REACTIONS (2)
  - ASTHENIA [None]
  - PAIN [None]
